FAERS Safety Report 9326292 (Version 1)
Quarter: 2013Q2

REPORT INFORMATION
  Report Type: Spontaneous
  Country: US (occurrence: None)
  Receive Date: 20130603
  Receipt Date: 20130603
  Transmission Date: 20140414
  Serious: Yes (Life-Threatening, Hospitalization)
  Sender: FDA-Public Use
  Company Number: None

PATIENT
  Age: 71 Year
  Sex: Male
  Weight: 103.87 kg

DRUGS (10)
  1. IMIQUIMOD [Suspect]
     Indication: ACTINIC KERATOSIS
     Dosage: TOPICAL
     Dates: start: 20120705, end: 20130815
  2. NITROLINGULA [Concomitant]
  3. LEVOTHYROXINE [Concomitant]
  4. DOXAZOSIN [Concomitant]
  5. PLAVIX [Concomitant]
  6. ASPIRIN [Concomitant]
  7. CETA[JO; [Concomitant]
  8. CERAVE LOTION [Concomitant]
  9. VITAMIN D [Concomitant]
  10. OCUVITE VITAMIN [Concomitant]

REACTIONS (2)
  - Coronary artery disease [None]
  - Stent placement [None]
